FAERS Safety Report 8819355 (Version 2)
Quarter: 2012Q4

REPORT INFORMATION
  Report Type: 
  Country: JP (occurrence: JP)
  Receive Date: 20121001
  Receipt Date: 20121109
  Transmission Date: 20130627
  Serious: Yes (Death, Hospitalization)
  Sender: FDA-Public Use
  Company Number: JP-JNJFOC-20120910055

PATIENT
  Age: 68 Year
  Sex: Female
  Weight: 82 kg

DRUGS (14)
  1. SIMPONI [Suspect]
     Indication: RHEUMATOID ARTHRITIS
     Route: 058
     Dates: start: 20120905, end: 20120905
  2. SIMPONI [Suspect]
     Indication: RHEUMATOID ARTHRITIS
     Route: 058
     Dates: start: 20120808
  3. BONALON [Concomitant]
     Indication: OSTEOPOROSIS
     Route: 048
     Dates: start: 20030219
  4. BONALON [Concomitant]
     Indication: OSTEOPOROSIS
     Route: 048
     Dates: end: 20120823
  5. OLMETEC [Concomitant]
     Indication: HYPERTENSION
     Route: 048
     Dates: start: 20040929, end: 20120918
  6. AMLODIPINE BESILATE [Concomitant]
     Indication: HYPERTENSION
     Route: 048
     Dates: start: 20030709, end: 20120917
  7. LIPITOR [Concomitant]
     Indication: HYPERCHOLESTEROLAEMIA
     Route: 048
     Dates: start: 20100714, end: 20120917
  8. PREDONINE [Concomitant]
     Indication: ASTHMA
     Route: 048
     Dates: start: 19970401, end: 20120918
  9. PREDONINE [Concomitant]
     Indication: RHEUMATOID ARTHRITIS
     Route: 048
     Dates: start: 19970401, end: 20120918
  10. AMBROXOL HYDROCHLORIDE [Concomitant]
     Indication: COUGH
     Route: 048
     Dates: start: 19991117
  11. AMBROXOL HYDROCHLORIDE [Concomitant]
     Indication: ASTHMA
     Route: 048
     Dates: start: 19991117
  12. FAMOTIDINE [Concomitant]
     Indication: PROPHYLAXIS
     Route: 048
     Dates: start: 20020828
  13. MEDICON [Concomitant]
     Indication: COUGH
     Route: 048
     Dates: start: 20020828
  14. MEXITIL [Concomitant]
     Indication: ARRHYTHMIA
     Route: 048
     Dates: start: 20040804

REACTIONS (2)
  - Sepsis [Fatal]
  - Endocarditis bacterial [Fatal]
